FAERS Safety Report 9167206 (Version 2)
Quarter: 2013Q2

REPORT INFORMATION
  Report Type: Spontaneous
  Country: CA (occurrence: CA)
  Receive Date: 20130318
  Receipt Date: 20130410
  Transmission Date: 20140414
  Serious: Yes (Hospitalization, Other)
  Sender: FDA-Public Use
  Company Number: CA-AMGEN-CANSP2013017320

PATIENT
  Age: 68 Year
  Sex: Male
  Weight: 125 kg

DRUGS (10)
  1. ENBREL [Suspect]
     Indication: PSORIASIS
     Dosage: 50 MG, 2 TIMES/WK
     Route: 058
     Dates: start: 20081017, end: 20120903
  2. BETALOL                            /00030002/ [Concomitant]
     Indication: HYPERTENSION
     Dosage: 200 MG, QD
     Route: 048
     Dates: start: 1993
  3. LIPITOR [Concomitant]
     Indication: HYPERLIPIDAEMIA
     Dosage: 10 MG, QD
     Route: 048
     Dates: start: 1993
  4. METFORMIN [Concomitant]
     Indication: DIABETES MELLITUS
     Dosage: 500 MG, BID
     Route: 048
     Dates: start: 200902
  5. ASPIRIN [Concomitant]
     Indication: GENERAL PHYSICAL CONDITION
     Dosage: 81 MG, QD
     Route: 048
     Dates: start: 201004
  6. DOVONEX [Concomitant]
     Indication: PSORIASIS
     Dosage: APPLY, QD
     Route: 061
     Dates: start: 2007
  7. TRIAMCINOLONE [Concomitant]
     Indication: PSORIASIS
     Dosage: IN 5% LIQUOR CARBONS DETERGENS, QD
     Route: 061
     Dates: start: 20090330
  8. TRIAMCINOLONE [Concomitant]
     Dosage: APPLY, BID / PRN
     Route: 061
     Dates: start: 20101206
  9. CLOBETASOL PROPIONATE W/SALICYLIC ACID [Concomitant]
     Indication: PSORIASIS
     Dosage: APPLY, BID / PRN
     Route: 061
     Dates: start: 20100329
  10. METAMUCIL                          /00029101/ [Concomitant]
     Indication: FAECES HARD
     Dosage: 1 PILL
     Route: 048
     Dates: start: 20120905

REACTIONS (4)
  - Renal cell carcinoma [Recovered/Resolved]
  - Fall [Recovered/Resolved]
  - Cervical vertebral fracture [Recovered/Resolved]
  - Blood urine present [Unknown]
